FAERS Safety Report 9184346 (Version 2)
Quarter: 2013Q2

REPORT INFORMATION
  Report Type: Report from Study
  Country: DE (occurrence: DE)
  Receive Date: 20130322
  Receipt Date: 20130409
  Transmission Date: 20140414
  Serious: Yes (Death)
  Sender: FDA-Public Use
  Company Number: DE-ROCHE-1205297

PATIENT
  Sex: Male

DRUGS (4)
  1. RANIBIZUMAB [Suspect]
     Indication: AGE-RELATED MACULAR DEGENERATION
     Route: 065
     Dates: start: 20120619
  2. RANIBIZUMAB [Suspect]
     Route: 065
     Dates: start: 20120717
  3. RANIBIZUMAB [Suspect]
     Route: 065
     Dates: start: 20120817
  4. TIMOLOL [Concomitant]
     Route: 065

REACTIONS (1)
  - Neoplasm malignant [Fatal]
